FAERS Safety Report 5301251-4 (Version None)
Quarter: 2007Q2

REPORT INFORMATION
  Report Type: 
  Country: None (occurrence: None)
  Receive Date: 20070418
  Receipt Date: 20070404
  Transmission Date: 20071010
  Serious: Yes (Hospitalization)
  Sender: FDA-Public Use
  Company Number: GB-AMGEN-UK218938

PATIENT
  Sex: Female
  Weight: 66.9 kg

DRUGS (2)
  1. PANITUMUMAB [Suspect]
     Indication: COLORECTAL CANCER
     Route: 042
     Dates: start: 20070316
  2. IRINOTECAN HCL [Suspect]
     Route: 042
     Dates: start: 20070316

REACTIONS (1)
  - CENTRAL LINE INFECTION [None]
